FAERS Safety Report 15309762 (Version 2)
Quarter: 2018Q4

REPORT INFORMATION
  Report Type: Spontaneous
  Country: US (occurrence: US)
  Receive Date: 20180823
  Receipt Date: 20181222
  Transmission Date: 20190204
  Serious: No
  Sender: FDA-Public Use
  Company Number: US-MALLINCKRODT-T201700639

PATIENT
  Age: 56 Year
  Sex: Female
  Weight: 78 kg

DRUGS (3)
  1. FENTANYL TRANSDERMAL SYSTEM [Suspect]
     Active Substance: FENTANYL
     Indication: PAIN
     Dosage: UNK
     Route: 062
  2. OXYCODONE [Suspect]
     Active Substance: OXYCODONE
     Indication: PRODUCT USED FOR UNKNOWN INDICATION
     Dosage: UNK
     Route: 065
  3. FENTANYL TRANSDERMAL SYSTEM [Suspect]
     Active Substance: FENTANYL
     Indication: PAIN
     Dosage: 75 MCG/HR, Q48HR (EVERY 48 HOURS)
     Route: 062
     Dates: start: 201611

REACTIONS (4)
  - Drug ineffective [Not Recovered/Not Resolved]
  - Malabsorption from application site [Not Recovered/Not Resolved]
  - Endometriosis [Unknown]
  - Product quality issue [Not Recovered/Not Resolved]

NARRATIVE: CASE EVENT DATE: 201611
